FAERS Safety Report 7130816-2 (Version None)
Quarter: 2010Q4

REPORT INFORMATION
  Report Type: 
  Country: None (occurrence: None)
  Receive Date: 20101201
  Receipt Date: 20101126
  Transmission Date: 20110411
  Serious: Yes (Hospitalization)
  Sender: FDA-Public Use
  Company Number: AT-ROCHE-735770

PATIENT
  Sex: Male
  Weight: 69 kg

DRUGS (3)
  1. CAPECITABINE [Suspect]
     Dosage: LAST DOSE PRIOR TO SAE: 20 OCTOBER 2010, PERMANENTLY DISCONTINUED.
     Route: 048
     Dates: start: 20100825, end: 20101020
  2. BEVACIZUMAB [Suspect]
     Dosage: LAST DOSE PRIOR TO SAE: 06 OCTOBER 2010. PERMANENTLY DISCONTINUED.
     Route: 042
     Dates: start: 20100825, end: 20101020
  3. ERLOTINIB [Suspect]
     Dosage: FREQUENCY: QD. LAST DOSE PRIOR TO SAE: 19 OCTOBER 2010, PERMANEMTLY DISCONTINUED.
     Route: 048
     Dates: start: 20100825, end: 20101020

REACTIONS (2)
  - DERMATITIS [None]
  - PSEUDOMONAL SEPSIS [None]
